FAERS Safety Report 10152099 (Version 1)
Quarter: 2014Q2

REPORT INFORMATION
  Report Type: Spontaneous
  Country: CH (occurrence: None)
  Receive Date: 20140501
  Receipt Date: 20140501
  Transmission Date: 20141212
  Serious: Yes (Other)
  Sender: FDA-Public Use
  Company Number: FK201401541

PATIENT
  Age: 69 Year
  Sex: Female

DRUGS (1)
  1. LETROZOLE [Suspect]
     Indication: INVASIVE DUCTAL BREAST CARCINOMA

REACTIONS (1)
  - Hypersensitivity vasculitis [None]
